FAERS Safety Report 21758377 (Version 1)
Quarter: 2022Q4

REPORT INFORMATION
  Report Type: Spontaneous
  Country: GB (occurrence: GB)
  Receive Date: 20221221
  Receipt Date: 20221221
  Transmission Date: 20230113
  Serious: Yes (Disabling)
  Sender: FDA-Public Use
  Company Number: GB-MHRA-MED-202212070108108850-LCKFV

PATIENT
  Age: 23 Year
  Sex: Male

DRUGS (1)
  1. FINASTERIDE [Suspect]
     Active Substance: FINASTERIDE
     Indication: Product used for unknown indication
     Dosage: UNK
     Route: 065

REACTIONS (8)
  - Muscle atrophy [Not Recovered/Not Resolved]
  - Dry skin [Not Recovered/Not Resolved]
  - Weight increased [Not Recovered/Not Resolved]
  - Gingival recession [Not Recovered/Not Resolved]
  - Neuralgia [Not Recovered/Not Resolved]
  - Hyperaesthesia [Not Recovered/Not Resolved]
  - Feeling cold [Not Recovered/Not Resolved]
  - Breast pain [Not Recovered/Not Resolved]
